FAERS Safety Report 9882253 (Version 1)
Quarter: 2014Q1

REPORT INFORMATION
  Report Type: Report from Study
  Country: DE (occurrence: DE)
  Receive Date: 20140207
  Receipt Date: 20140207
  Transmission Date: 20141002
  Serious: Yes (Hospitalization)
  Sender: FDA-Public Use
  Company Number: DE-INCYTE CORPORATION-2014IN000241

PATIENT
  Sex: Female
  Weight: 62 kg

DRUGS (15)
  1. INCB018424 [Suspect]
     Indication: MYELOFIBROSIS
     Dosage: 30 MG, DAILY
     Route: 048
     Dates: start: 20130522
  2. INCB018424 [Suspect]
     Dosage: 20 MG, DAILY
     Route: 048
     Dates: start: 20130715, end: 20130728
  3. INCB018424 [Suspect]
     Dosage: 5 MG, DAILY
     Route: 048
     Dates: start: 20130729, end: 20130801
  4. INCB018424 [Suspect]
     Dosage: 10 MG, DAILY
     Route: 048
     Dates: start: 20130802, end: 20130916
  5. INCB018424 [Suspect]
     Dosage: 5 MG, DAILY
     Route: 048
     Dates: start: 20131004, end: 20131023
  6. INCB018424 [Suspect]
     Dosage: 10 MG, DAILY
     Route: 048
     Dates: start: 20131024, end: 20131219
  7. INCB018424 [Suspect]
     Dosage: 5 MG, DAILY
     Route: 048
     Dates: start: 20131220, end: 20140109
  8. INCB018424 [Suspect]
     Dosage: 5 MG, DAILY
     Route: 048
     Dates: start: 20140122
  9. SAROTEN [Concomitant]
     Dosage: UNK
     Dates: start: 19980601
  10. CARMEN [Concomitant]
     Dosage: UNK
     Dates: start: 19970805
  11. ASS [Concomitant]
     Dosage: UNK
     Dates: start: 19980517
  12. XIPAMID [Concomitant]
     Dosage: UNK
     Dates: start: 20121206, end: 20131024
  13. ALLOPURINOL [Concomitant]
     Dosage: UNK
     Dates: start: 20121206
  14. PANTOPRAZOLE [Concomitant]
     Dosage: UNK
     Dates: start: 20121206, end: 20131025
  15. PASPERTIN [Concomitant]

REACTIONS (1)
  - Colitis [Recovered/Resolved]
